FAERS Safety Report 5572049-7 (Version None)
Quarter: 2007Q4

REPORT INFORMATION
  Report Type: 
  Country: None (occurrence: None)
  Receive Date: 20071219
  Receipt Date: 20071205
  Transmission Date: 20080405
  Serious: Yes (Other)
  Sender: FDA-Public Use
  Company Number: 2007S1010854

PATIENT
  Age: 51 Year
  Sex: Female
  Weight: 49.8957 kg

DRUGS (3)
  1. FENTANYL TRANSDERMAL SYSTEM [Suspect]
     Indication: BACK PAIN
     Dosage: 100 UG/HR, EVERY 3 DAYS; TRANSDERMAL
     Route: 062
     Dates: start: 20070615
  2. TRAZODONE (CON.) [Concomitant]
  3. MS CONTIN (PREV.) [Concomitant]

REACTIONS (4)
  - BACK PAIN [None]
  - DRUG DEPENDENCE [None]
  - DRUG INEFFECTIVE [None]
  - PHARMACEUTICAL PRODUCT COMPLAINT [None]
